FAERS Safety Report 4506033-9 (Version None)
Quarter: 2004Q4

REPORT INFORMATION
  Report Type: 
  Country: None (occurrence: None)
  Receive Date: 20041025
  Receipt Date: 20031216
  Transmission Date: 20050328
  Serious: Yes (Other)
  Sender: FDA-Public Use
  Company Number: US-JNJFOC-20030802933

PATIENT
  Age: 62 Year
  Sex: Female
  Weight: 59.4212 kg

DRUGS (4)
  1. REMICADE [Suspect]
     Indication: RHEUMATOID ARTHRITIS
     Dosage: 300 MG, 1 IN 8 WEEK, INTRAVENOUS
     Route: 042
     Dates: start: 20010205, end: 20030401
  2. METHOTREXATE [Concomitant]
  3. VOLTAREN [Concomitant]
  4. FOLIC ACID [Concomitant]

REACTIONS (1)
  - B-CELL LYMPHOMA [None]
